FAERS Safety Report 9237960 (Version 1)
Quarter: 2013Q1

REPORT INFORMATION
  Report Type: Spontaneous
  Country: US (occurrence: None)
  Receive Date: 20121107
  Receipt Date: 20121107
  Transmission Date: 20140127
  Serious: No
  Sender: FDA-Public Use
  Company Number: 2012HGS-003748

PATIENT
  Age: 61 Year
  Sex: Female
  Weight: 93.44 kg

DRUGS (20)
  1. BENLYSTA [Suspect]
     Indication: SYSTEMIC LUPUS ERYTHEMATOSUS
     Dosage: 1 IN 28 D, INTRAVENOUS DRIP
     Route: 041
     Dates: start: 20120606
  2. GABAPENTIN [Concomitant]
  3. NORCO [Concomitant]
  4. COREG [Concomitant]
  5. METHADONE [Concomitant]
  6. SPIRONOLACTONE [Concomitant]
  7. ZANTAC [Concomitant]
  8. NEXIUM [Concomitant]
  9. MIRAPEX [Concomitant]
  10. AMBIEN [Concomitant]
  11. PLAQUENIL [Concomitant]
  12. METFORMIN [Concomitant]
  13. LEVEMIR [Concomitant]
  14. FOLIC ACID [Concomitant]
  15. XANAX [Concomitant]
  16. MICARDIS [Concomitant]
  17. CALCIUM [Concomitant]
  18. ASPIRIN [Concomitant]
  19. SAVELLA [Concomitant]
  20. LAMOTRIGINE [Concomitant]

REACTIONS (7)
  - Feeling jittery [None]
  - Arthritis [None]
  - Arthralgia [None]
  - Fatigue [None]
  - Rhinorrhoea [None]
  - Anxiety [None]
  - Diarrhoea [None]
